FAERS Safety Report 8385969-5 (Version None)
Quarter: 2012Q2

REPORT INFORMATION
  Report Type: 
  Country: None (occurrence: None)
  Receive Date: 20120525
  Receipt Date: 20120515
  Transmission Date: 20120825
  Serious: Yes (Other)
  Sender: FDA-Public Use
  Company Number: CA-JNJFOC-20120514178

PATIENT
  Sex: Female
  Weight: 93 kg

DRUGS (4)
  1. REMICADE [Suspect]
     Indication: ARTHRITIS
     Route: 042
  2. REMICADE [Suspect]
     Route: 042
     Dates: start: 20120426
  3. REMICADE [Suspect]
     Route: 042
  4. REMICADE [Suspect]
     Indication: PSORIASIS
     Route: 042
     Dates: start: 20120426

REACTIONS (1)
  - OESOPHAGEAL SPASM [None]
